FAERS Safety Report 17891546 (Version 1)
Quarter: 2020Q2

REPORT INFORMATION
  Report Type: Spontaneous
  Country: US (occurrence: US)
  Receive Date: 20200612
  Receipt Date: 20200612
  Transmission Date: 20200714
  Serious: Yes (Other)
  Sender: FDA-Public Use
  Company Number: US-INCYTE CORPORATION-2020IN005353

PATIENT

DRUGS (1)
  1. JAKAFI [Suspect]
     Active Substance: RUXOLITINIB
     Indication: MYELOPROLIFERATIVE NEOPLASM
     Dosage: 5 MILLIGRAM, QD
     Route: 048
     Dates: start: 20191105, end: 20200611

REACTIONS (5)
  - Off label use [Unknown]
  - Renal impairment [Unknown]
  - Hypersomnia [Unknown]
  - Anaemia [Unknown]
  - Fatigue [Unknown]
